FAERS Safety Report 8088580-9 (Version None)
Quarter: 2012Q1

REPORT INFORMATION
  Report Type: 
  Country: None (occurrence: None)
  Receive Date: 20120128
  Receipt Date: 20110408
  Transmission Date: 20120608
  Serious: No
  Sender: FDA-Public Use
  Company Number: US-ABBOTT-11P-163-0717650-00

PATIENT
  Age: 31 Year
  Sex: Female

DRUGS (3)
  1. HYDROCHLOROTHIAZIDE [Concomitant]
     Indication: HYPERTENSION
  2. ARMODAFINIL [Concomitant]
     Indication: FUNGAL INFECTION
  3. HUMIRA [Suspect]
     Indication: PSORIASIS
     Dates: start: 20101105

REACTIONS (2)
  - HYPERTENSION [None]
  - VULVOVAGINAL MYCOTIC INFECTION [None]
